FAERS Safety Report 5303612-6 (Version None)
Quarter: 2007Q2

REPORT INFORMATION
  Report Type: 
  Country: None (occurrence: None)
  Receive Date: 20070420
  Receipt Date: 20070412
  Transmission Date: 20071010
  Serious: Yes (Hospitalization)
  Sender: FDA-Public Use
  Company Number: FR-PFIZER INC-2007024784

PATIENT
  Age: 26 Year
  Sex: Female

DRUGS (6)
  1. SALAZOPYRINE [Suspect]
     Indication: ANKYLOSING SPONDYLITIS
     Route: 048
     Dates: start: 20070109, end: 20070219
  2. LEVOTHYROXINE SODIUM [Suspect]
     Indication: HYPOTHYROIDISM
     Route: 048
  3. INDOMETHACIN [Suspect]
     Indication: BONE PAIN
     Route: 048
     Dates: start: 20070101, end: 20070219
  4. ESCITALOPRAM OXALATE [Suspect]
     Route: 048
     Dates: start: 20070214, end: 20070216
  5. CAFFEINE/OPIUM/PARACETAMOL [Suspect]
     Route: 048
     Dates: start: 20070214, end: 20070216
  6. TETRAZEPAM [Suspect]
     Route: 048

REACTIONS (8)
  - DRUG RASH WITH EOSINOPHILIA AND SYSTEMIC SYMPTOMS [None]
  - HEPATIC ENZYME INCREASED [None]
  - HYPERVENTILATION [None]
  - LYMPHADENOPATHY [None]
  - PYREXIA [None]
  - RASH MACULO-PAPULAR [None]
  - TOXIC SKIN ERUPTION [None]
  - WEIGHT DECREASED [None]
